FAERS Safety Report 5313637-2 (Version None)
Quarter: 2007Q2

REPORT INFORMATION
  Report Type: 
  Country: None (occurrence: None)
  Receive Date: 20070425
  Receipt Date: 20070419
  Transmission Date: 20071010
  Serious: Yes (Hospitalization)
  Sender: FDA-Public Use
  Company Number: E2020-01174-SPO-JP

PATIENT
  Age: 89 Year
  Sex: Male

DRUGS (2)
  1. ARICEPT [Suspect]
     Indication: DEMENTIA ALZHEIMER'S TYPE
     Dosage: ORAL
     Route: 048
     Dates: end: 20070407
  2. OTHER DRUGS, NOT SPECIFIED [Concomitant]

REACTIONS (6)
  - ABASIA [None]
  - BEDRIDDEN [None]
  - BLOOD AMYLASE INCREASED [None]
  - GASTRIC ULCER HAEMORRHAGE [None]
  - LIVER DISORDER [None]
  - RHABDOMYOLYSIS [None]
